FAERS Safety Report 8344304-9 (Version None)
Quarter: 2012Q2

REPORT INFORMATION
  Report Type: 
  Country: None (occurrence: None)
  Receive Date: 20120508
  Receipt Date: 20090218
  Transmission Date: 20120825
  Serious: Yes (Disabling)
  Sender: FDA-Public Use
  Company Number: US-TEVA-US025483

PATIENT
  Sex: Female
  Weight: 87.168 kg

DRUGS (3)
  1. TREANDA [Suspect]
     Indication: CHRONIC LYMPHOCYTIC LEUKAEMIA
     Route: 042
     Dates: start: 20081230, end: 20081231
  2. UNKNOWN STEROID [Concomitant]
  3. ANTIEMETIC [Concomitant]

REACTIONS (4)
  - RASH [None]
  - SWELLING [None]
  - CONTUSION [None]
  - PYREXIA [None]
